FAERS Safety Report 5777348-1 (Version None)
Quarter: 2008Q2

REPORT INFORMATION
  Report Type: 
  Country: None (occurrence: None)
  Receive Date: 20080616
  Receipt Date: 20080603
  Transmission Date: 20081010
  Serious: Yes (Other)
  Sender: FDA-Public Use
  Company Number: 2008AL006275

PATIENT
  Age: 65 Year
  Sex: Female
  Weight: 58.9676 kg

DRUGS (10)
  1. DIGOXIN [Suspect]
     Indication: ARRHYTHMIA
     Dosage: 0.125 MG, DAILY, PO
     Route: 048
     Dates: start: 20060901, end: 20080501
  2. COUMADIN [Concomitant]
  3. ASPIRIN [Concomitant]
  4. KLOR-CON [Concomitant]
  5. AVAPRO [Concomitant]
  6. TENORMIN [Concomitant]
  7. SYNTHROID [Concomitant]
  8. FUROSEMIDE [Concomitant]
  9. LIPITOR [Concomitant]
  10. ZANTAC [Concomitant]

REACTIONS (3)
  - ABDOMINAL PAIN UPPER [None]
  - PHOTOPSIA [None]
  - TREATMENT NONCOMPLIANCE [None]
